FAERS Safety Report 5366957-X (Version None)
Quarter: 2007Q2

REPORT INFORMATION
  Report Type: 
  Country: None (occurrence: None)
  Receive Date: 20070622
  Receipt Date: 20070612
  Transmission Date: 20071010
  Serious: Yes (Hospitalization)
  Sender: FDA-Public Use
  Company Number: US-ABBOTT-03P-163-0238797-00

PATIENT
  Age: 34 Year
  Sex: Male

DRUGS (6)
  1. VALPROIC ACID [Interacting]
     Indication: PSYCHOTIC DISORDER
  2. HALOPERIDOL [Suspect]
     Indication: PSYCHOTIC DISORDER
  3. DIPHENHYDRAMINE HCL [Suspect]
     Indication: PSYCHOTIC DISORDER
  4. CLOZAPINE [Concomitant]
     Indication: DRUG USE FOR UNKNOWN INDICATION
  5. BENZATROPINE [Concomitant]
     Indication: DRUG USE FOR UNKNOWN INDICATION
  6. OLANZAPINE [Concomitant]
     Indication: DRUG USE FOR UNKNOWN INDICATION

REACTIONS (7)
  - DRUG INTERACTION POTENTIATION [None]
  - EOSINOPHILIC PNEUMONIA ACUTE [None]
  - NAUSEA [None]
  - PERICARDIAL EFFUSION [None]
  - PLEURAL EFFUSION [None]
  - RASH MACULAR [None]
  - VOMITING [None]
